FAERS Safety Report 8366287-8 (Version None)
Quarter: 2012Q2

REPORT INFORMATION
  Report Type: 
  Country: None (occurrence: None)
  Receive Date: 20120517
  Receipt Date: 20120514
  Transmission Date: 20120825
  Serious: Yes (Hospitalization)
  Sender: FDA-Public Use
  Company Number: PHEH2011US013044

PATIENT
  Sex: Male

DRUGS (11)
  1. PREDNISONE TAB [Concomitant]
     Dosage: 5 MG
  2. AMLODIPINE BESYLATE [Concomitant]
     Dosage: 5 MG
  3. LIPITOR [Concomitant]
     Dosage: 20 MG
  4. LEVOTHYROXINE SODIUM [Concomitant]
     Dosage: 25 UG
  5. MYFORTIC [Suspect]
     Indication: IMMUNOSUPPRESSION
     Dosage: 360 MG, BID
     Route: 048
     Dates: start: 20050919
  6. METOPROLOL TARTRATE [Concomitant]
  7. LANTUS [Concomitant]
  8. OMEPRAZOLE [Concomitant]
     Dosage: 20 MG
  9. PROGRAF [Concomitant]
     Dosage: 1 MG
  10. NOVOLOG [Concomitant]
  11. LISINOPRIL [Concomitant]
     Dosage: 20 MG

REACTIONS (1)
  - DIABETIC COMPLICATION [None]
